FAERS Safety Report 8200047-3 (Version None)
Quarter: 2012Q1

REPORT INFORMATION
  Report Type: 
  Country: None (occurrence: None)
  Receive Date: 20120306
  Receipt Date: 20120221
  Transmission Date: 20120608
  Serious: Yes (Other)
  Sender: FDA-Public Use
  Company Number: 2012P1004317

PATIENT
  Age: 55 Year
  Sex: Female
  Weight: 61.2356 kg

DRUGS (4)
  1. CARISOPRODOL [Concomitant]
  2. FENTANYL-75 [Suspect]
     Indication: PAIN
     Dosage: 1 PATCH;Q72H;TDER 1 PATCH;Q48H;TDER
     Route: 062
     Dates: start: 20110101
  3. FENTANYL-75 [Suspect]
     Indication: PAIN
     Dosage: 1 PATCH;Q72H;TDER 1 PATCH;Q48H;TDER
     Route: 062
     Dates: start: 20100101, end: 20110101
  4. HYDROCODONE BITARTRATE AND IBUPROFEN [Concomitant]

REACTIONS (3)
  - DIZZINESS [None]
  - PRODUCT ADHESION ISSUE [None]
  - CHRONIC OBSTRUCTIVE PULMONARY DISEASE [None]
